FAERS Safety Report 7987392 (Version 7)
Quarter: 2019Q1

REPORT INFORMATION
  Report Type: Spontaneous
  Country: US (occurrence: US)
  Receive Date: 20110613
  Receipt Date: 20190329
  Transmission Date: 20190418
  Serious: Yes (Hospitalization, Other)
  Sender: FDA-Public Use
  Company Number: US-ASTRAZENECA-2011SE34464

PATIENT
  Age: 25186 Day
  Sex: Female

DRUGS (43)
  1. SYMBICORT [Suspect]
     Active Substance: BUDESONIDE\FORMOTEROL FUMARATE DIHYDRATE
     Dosage: 160/4.5 MCG 2 PUFFS TWO TIMES A DAY
     Route: 055
     Dates: start: 20161007
  2. DALIRESP [Suspect]
     Active Substance: ROFLUMILAST
     Route: 048
  3. FUROSEMIDE. [Concomitant]
     Active Substance: FUROSEMIDE
     Dosage: ONE OR TWO TABLET DAILY OR TWICE DAILY
     Route: 048
     Dates: start: 20160815
  4. KLOR-CON M20 [Concomitant]
     Active Substance: POTASSIUM CHLORIDE
     Route: 048
  5. MULTIPLE VITAMINS/MINERALS/NO IRON [Concomitant]
     Route: 048
  6. OXYBUTYNIN. [Concomitant]
     Active Substance: OXYBUTYNIN CHLORIDE
     Route: 048
  7. SIMVASTATIN. [Concomitant]
     Active Substance: SIMVASTATIN
     Indication: HYPERCHOLESTEROLAEMIA
     Route: 048
     Dates: start: 20170124
  8. DITROPAN [Concomitant]
     Active Substance: OXYBUTYNIN CHLORIDE
     Route: 048
  9. DUONEB [Concomitant]
     Active Substance: ALBUTEROL SULFATE\IPRATROPIUM BROMIDE
     Dosage: 0.5-2.5 (3)MG/3ML SOLUTION, NEBULIZER INHALATION THREE TIMES DAILY, AS NEEDED
     Route: 055
  10. MAGNESIUM OXIDE. [Concomitant]
     Active Substance: MAGNESIUM OXIDE
     Indication: BLOOD MAGNESIUM DECREASED
     Route: 048
     Dates: start: 20170123
  11. OMEPRAZOLE. [Suspect]
     Active Substance: OMEPRAZOLE
     Route: 048
     Dates: start: 20141028
  12. ASPIRIN (E.C.) [Concomitant]
     Active Substance: ASPIRIN
     Route: 048
  13. NITROSTAT [Concomitant]
     Active Substance: NITROGLYCERIN
     Indication: CHEST PAIN
     Dosage: EVERY FIVE MINUTES, AS NEEDED
     Route: 060
  14. DITROPAN [Concomitant]
     Active Substance: OXYBUTYNIN CHLORIDE
     Route: 048
  15. OXYGEN. [Concomitant]
     Active Substance: OXYGEN
     Indication: CHRONIC OBSTRUCTIVE PULMONARY DISEASE
     Dosage: 4 LPM WALKING, 2 LPM RESTING INHALATION CONTINUOUSLY
  16. CYCLOBENZAPRINE. [Concomitant]
     Active Substance: CYCLOBENZAPRINE
     Indication: BACK PAIN
     Dosage: 1 TABLET, TWO TIMES A DAY, AS REUQIRED
     Route: 048
     Dates: start: 20160930
  17. SYMBICORT [Suspect]
     Active Substance: BUDESONIDE\FORMOTEROL FUMARATE DIHYDRATE
     Route: 055
  18. FERROUS SULFATE. [Concomitant]
     Active Substance: FERROUS SULFATE
     Indication: ANAEMIA
     Route: 048
     Dates: start: 20130522
  19. TIKOSYN [Concomitant]
     Active Substance: DOFETILIDE
     Route: 048
  20. FUROSEMIDE. [Concomitant]
     Active Substance: FUROSEMIDE
     Dosage: PATIENT IS TAKING COMBINATION OF 40 MG AND 80 MG
     Route: 048
     Dates: start: 20160918
  21. CARDIZEM CD [Concomitant]
     Active Substance: DILTIAZEM HYDROCHLORIDE
     Indication: HYPERTENSION
     Route: 048
     Dates: start: 20140107
  22. SYMBICORT [Suspect]
     Active Substance: BUDESONIDE\FORMOTEROL FUMARATE DIHYDRATE
     Dosage: 160/4.5 MCG 2 PUFFS TWO TIMES A DAY
     Route: 055
     Dates: start: 20150105
  23. DALIRESP [Suspect]
     Active Substance: ROFLUMILAST
     Route: 048
     Dates: start: 20141024
  24. DALIRESP [Suspect]
     Active Substance: ROFLUMILAST
     Route: 048
     Dates: start: 20161007
  25. FUROSEMIDE. [Concomitant]
     Active Substance: FUROSEMIDE
     Route: 048
     Dates: start: 20140516
  26. PRADAXA [Concomitant]
     Active Substance: DABIGATRAN ETEXILATE MESYLATE
     Route: 048
     Dates: start: 20140710
  27. PRADAXA [Concomitant]
     Active Substance: DABIGATRAN ETEXILATE MESYLATE
     Route: 048
     Dates: start: 20161007
  28. SYNTHROID [Concomitant]
     Active Substance: LEVOTHYROXINE SODIUM
     Dosage: 30 MINUTES BEFORE BREAKFAST
     Route: 048
     Dates: start: 20141002
  29. ALPRAZOLAM. [Concomitant]
     Active Substance: ALPRAZOLAM
     Dosage: 1 TABLET DISPERSE AT BEDTIME, AS NEEDED
     Route: 048
     Dates: start: 20140702
  30. CARDIZEM CD [Concomitant]
     Active Substance: DILTIAZEM HYDROCHLORIDE
     Indication: HYPERTENSION
     Route: 048
     Dates: start: 20170123
  31. SIMVASTATIN. [Concomitant]
     Active Substance: SIMVASTATIN
     Indication: HYPERCHOLESTEROLAEMIA
     Route: 048
     Dates: start: 20140919
  32. COMBIVENT [Concomitant]
     Active Substance: ALBUTEROL SULFATE\IPRATROPIUM BROMIDE
     Indication: ASTHMA
     Dosage: 18-103 MCG 2 PUFFS INHALATION EVERY TWO HOURS, AS NEEDED FOR RESCUE
     Route: 055
  33. OXYGEN. [Concomitant]
     Active Substance: OXYGEN
     Indication: ASTHMA
     Dosage: 4 LPM WALKING, 2 LPM RESTING INHALATION CONTINUOUSLY
  34. PREDNISONE. [Concomitant]
     Active Substance: PREDNISONE
     Route: 048
  35. FUROSEMIDE. [Concomitant]
     Active Substance: FUROSEMIDE
     Dosage: 1 TABLET ONCE OR TWICE DAILY AS DIRECTED
     Route: 048
     Dates: start: 20140516
  36. SERTRALINE HYDROCHLORIDE. [Concomitant]
     Active Substance: SERTRALINE HYDROCHLORIDE
     Indication: ANXIETY
     Route: 048
     Dates: start: 20141219
  37. ALDACTONE [Concomitant]
     Active Substance: SPIRONOLACTONE
     Route: 048
     Dates: start: 20131018
  38. SERTRALINE HYDROCHLORIDE. [Concomitant]
     Active Substance: SERTRALINE HYDROCHLORIDE
     Indication: ANXIETY
     Route: 048
     Dates: start: 20170123
  39. ALPRAZOLAM. [Concomitant]
     Active Substance: ALPRAZOLAM
     Dosage: 1 TABLET DISPERSE AT BEDTIME, AS NEEDED
     Route: 048
     Dates: start: 20160113
  40. KLOR-CON M20 [Concomitant]
     Active Substance: POTASSIUM CHLORIDE
     Route: 048
  41. COMBIVENT [Concomitant]
     Active Substance: ALBUTEROL SULFATE\IPRATROPIUM BROMIDE
     Indication: CHRONIC OBSTRUCTIVE PULMONARY DISEASE
     Dosage: 18-103 MCG 2 PUFFS INHALATION EVERY TWO HOURS, AS NEEDED FOR RESCUE
     Route: 055
  42. METOLAZONE. [Concomitant]
     Active Substance: METOLAZONE
     Dosage: AS NEEDED
     Route: 048
  43. DEXILANT [Concomitant]
     Active Substance: DEXLANSOPRAZOLE
     Dosage: DAILY
     Route: 048
     Dates: start: 20161007

REACTIONS (17)
  - Cardiac failure congestive [Unknown]
  - Iron deficiency anaemia [Unknown]
  - Hypertension [Unknown]
  - Magnesium deficiency [Unknown]
  - Mobility decreased [Unknown]
  - Malaise [Unknown]
  - Hypercholesterolaemia [Unknown]
  - Therapy cessation [Unknown]
  - Asthma [Unknown]
  - Hypothyroidism [Unknown]
  - Chronic obstructive pulmonary disease [Unknown]
  - Anxiety [Unknown]
  - Lung disorder [Unknown]
  - Fall [Unknown]
  - Product dose omission [Unknown]
  - Cardiac disorder [Unknown]
  - Spinal fracture [Unknown]

NARRATIVE: CASE EVENT DATE: 20141219
